FAERS Safety Report 8796844 (Version 2)
Quarter: 2012Q4

REPORT INFORMATION
  Report Type: 
  Country: US (occurrence: US)
  Receive Date: 20120917
  Receipt Date: 20121011
  Transmission Date: 20130627
  Serious: Yes (Hospitalization, Other)
  Sender: FDA-Public Use
  Company Number: US-JNJFOC-20120905043

PATIENT
  Age: 44 Year
  Sex: Female
  Weight: 65.32 kg

DRUGS (7)
  1. REMICADE [Suspect]
     Indication: CROHN^S DISEASE
     Dosage: 1st infusion
     Route: 042
     Dates: start: 20120906
  2. TYLENOL [Suspect]
     Route: 065
  3. TYLENOL [Suspect]
     Indication: HEADACHE
     Route: 065
     Dates: start: 20120906
  4. PREDNISONE [Concomitant]
     Indication: CROHN^S DISEASE
     Route: 065
  5. HYDROCODONE [Concomitant]
     Indication: PAIN
     Dosage: 7.5 mg/325 fro Crohn^s pain
     Route: 065
  6. SLOW FE [Concomitant]
     Indication: ANAEMIA
     Route: 065
  7. BIRTH CONTROL PILLS [Concomitant]
     Indication: CONTRACEPTION
     Route: 065

REACTIONS (4)
  - Blood pressure increased [Recovered/Resolved]
  - Infusion related reaction [Recovered/Resolved]
  - Palpitations [Recovered/Resolved]
  - Headache [Recovered/Resolved]
